FAERS Safety Report 5165881-5 (Version None)
Quarter: 2006Q4

REPORT INFORMATION
  Report Type: 
  Country: None (occurrence: None)
  Receive Date: 20061128
  Receipt Date: 20061114
  Transmission Date: 20070319
  Serious: Yes (Hospitalization)
  Sender: FDA-Public Use
  Company Number: 2006BI014019

PATIENT
  Age: 50 Year
  Sex: Female
  Weight: 120 kg

DRUGS (2)
  1. AVONEX [Suspect]
     Indication: MULTIPLE SCLEROSIS
     Dosage: 30 UG; QW; IM
     Route: 030
     Dates: start: 20000101, end: 20060901
  2. UNKNOWN MEDICATION [Concomitant]

REACTIONS (9)
  - ASTHENIA [None]
  - BONE PAIN [None]
  - HAEMOGLOBIN DECREASED [None]
  - HYPERHIDROSIS [None]
  - INADEQUATE ANALGESIA [None]
  - INFLUENZA LIKE ILLNESS [None]
  - PLASMACYTOMA [None]
  - PYREXIA [None]
  - RIB FRACTURE [None]
